FAERS Safety Report 10085876 (Version 2)
Quarter: 2014Q2

REPORT INFORMATION
  Report Type: Report from Study
  Country: US (occurrence: US)
  Receive Date: 20140418
  Receipt Date: 20140418
  Transmission Date: 20141212
  Serious: Yes (Other)
  Sender: FDA-Public Use
  Company Number: US-ROCHE-1353713

PATIENT
  Age: 54 Year
  Sex: Female
  Weight: 56.07 kg

DRUGS (14)
  1. TARCEVA [Suspect]
     Indication: NON-SMALL CELL LUNG CANCER
     Dosage: FREQUENCY: DAILY
     Route: 048
     Dates: start: 20140128
  2. AVASTIN [Suspect]
     Indication: LUNG NEOPLASM MALIGNANT
     Route: 042
     Dates: start: 2013, end: 20130813
  3. FOLIC ACID [Concomitant]
     Route: 048
     Dates: start: 201304
  4. ACETAMINOPHEN [Concomitant]
     Indication: PAIN
     Dosage: 500/600 MG AS NEEDED
     Route: 048
  5. ONDANSETRON [Concomitant]
     Indication: NAUSEA
     Dosage: AS NEEDED
     Route: 048
     Dates: start: 201306
  6. KEPPRA [Concomitant]
     Indication: CONVULSION
     Route: 048
     Dates: start: 20130319
  7. PROCRIT [Concomitant]
  8. DECADRON [Concomitant]
     Dosage: 2 DAYS BEFORE CHEMO AND 2 DAYS AFTER CHEMO
     Route: 048
     Dates: start: 2013
  9. PANTOPRAZOLE [Concomitant]
     Indication: GASTROOESOPHAGEAL REFLUX DISEASE
     Route: 065
     Dates: start: 201306
  10. ALIMTA [Concomitant]
     Route: 065
     Dates: end: 201308
  11. NEULASTA [Concomitant]
  12. TAXOTERE [Concomitant]
     Route: 065
     Dates: end: 20130905
  13. CARBOPLATIN [Concomitant]
  14. AREDIA [Concomitant]
     Route: 048
     Dates: start: 201310

REACTIONS (11)
  - Eye pruritus [Recovered/Resolved]
  - Rash [Not Recovered/Not Resolved]
  - Growth of eyelashes [Recovered/Resolved]
  - Hair texture abnormal [Recovering/Resolving]
  - Wound [Not Recovered/Not Resolved]
  - Blister [Unknown]
  - Facial pain [Unknown]
  - Dry skin [Unknown]
  - Lacrimation increased [Recovering/Resolving]
  - Surgical failure [Unknown]
  - Weight fluctuation [Unknown]
